FAERS Safety Report 12437420 (Version 1)
Quarter: 2016Q2

REPORT INFORMATION
  Report Type: Spontaneous
  Country: US (occurrence: None)
  Receive Date: 20160603
  Receipt Date: 20160603
  Transmission Date: 20160815
  Serious: Yes (Hospitalization, Disabling)
  Sender: FDA-Public Use
  Company Number: None

PATIENT
  Age: 46 Year
  Sex: Female
  Weight: 68.04 kg

DRUGS (10)
  1. IMETREX [Concomitant]
  2. RESTORIL [Concomitant]
     Active Substance: TEMAZEPAM
  3. CALCIUM [Concomitant]
     Active Substance: CALCIUM
  4. ALPRAZOLAM. [Suspect]
     Active Substance: ALPRAZOLAM
     Indication: ANXIETY
     Route: 048
     Dates: start: 20160308, end: 20160427
  5. DIVALPROEX SODIUM ER [Suspect]
     Active Substance: DIVALPROEX SODIUM
     Indication: BIPOLAR DISORDER
     Route: 048
     Dates: start: 20160428, end: 20160516
  6. DIVALPROEX SODIUM ER [Suspect]
     Active Substance: DIVALPROEX SODIUM
     Indication: MIGRAINE
     Route: 048
     Dates: start: 20160428, end: 20160516
  7. VITAMIN D [Concomitant]
     Active Substance: CHOLECALCIFEROL
  8. TRAZEDONE [Concomitant]
  9. TIROSINT [Concomitant]
     Active Substance: LEVOTHYROXINE SODIUM
  10. C [Concomitant]

REACTIONS (8)
  - Product counterfeit [None]
  - Insomnia [None]
  - Depression [None]
  - Hyperhidrosis [None]
  - Paranoia [None]
  - Panic attack [None]
  - Migraine [None]
  - Muscle spasms [None]

NARRATIVE: CASE EVENT DATE: 20160513
